FAERS Safety Report 7562042-7 (Version None)
Quarter: 2011Q2

REPORT INFORMATION
  Report Type: 
  Country: None (occurrence: None)
  Receive Date: 20110622
  Receipt Date: 20081113
  Transmission Date: 20111010
  Serious: Yes (Hospitalization, Other)
  Sender: FDA-Public Use
  Company Number: PHHY2008DE37535

PATIENT
  Age: 40 Year
  Sex: Female

DRUGS (19)
  1. SANDOSTATIN LAR [Suspect]
     Dosage: 5 MG, UNK
     Route: 030
     Dates: start: 20081001
  2. NEORECORMON ^BOEHRINGER MANNHEIM^ [Concomitant]
     Dosage: 1000  IU  2X  PER WEEK
  3. LORATADINE [Concomitant]
  4. TORSEMIDE [Concomitant]
     Dosage: 10 MG, 2-2-2
  5. SANDOSTATIN LAR [Suspect]
     Dosage: 500 MG, QD
     Route: 058
     Dates: start: 20081001
  6. EPO [Concomitant]
     Dosage: 2X1  A/ WEEK
  7. NEORECORMON ^BOEHRINGER MANNHEIM^ [Concomitant]
     Dosage: 100  IU 3X  PER WEEK S.C. INJECTION
  8. CARVEDILOL [Concomitant]
     Dosage: 6.25 MG, 1/2-0-1/2
  9. SANDOSTATIN LAR [Suspect]
     Dosage: 100 MG, TID
     Route: 058
     Dates: start: 20081001
  10. SANDOSTATIN LAR [Suspect]
     Dosage: 3X  PER WEEK  100MG
     Route: 058
     Dates: start: 20081001
  11. SANDOSTATIN LAR [Suspect]
     Dosage: 1X  DAILY  500MG
     Route: 058
     Dates: start: 20081001
  12. SANDOSTATIN LAR [Suspect]
     Dosage: AS NEEDED. 100MG S.C. 1-2X DAILY
     Route: 058
     Dates: start: 20081001
  13. PANTOPRAZOLE [Concomitant]
     Dosage: 20 MG, 0-0-2
  14. NOVORAPID [Concomitant]
     Dosage: 10 ML, 10ML OVER 24H PUMP
  15. SANDOSTATIN LAR [Suspect]
     Dosage: 10 MG, UNK
     Route: 030
     Dates: start: 20081001
  16. SANDOSTATIN LAR [Suspect]
     Dosage: 3-4X  PER WEEK  50-100MG
     Route: 058
     Dates: start: 20081001
  17. SANDOSTATIN LAR [Suspect]
     Dosage: 20 MG, UNK
     Route: 030
     Dates: start: 20081001
  18. NEPHROTRANS [Concomitant]
     Dosage: 840 MG, TID
  19. NEPHROTRANS [Concomitant]
     Dosage: 840 MG, 5 DAILY

REACTIONS (10)
  - VOMITING [None]
  - CACHEXIA [None]
  - PANCREATIC DISORDER [None]
  - PAIN IN EXTREMITY [None]
  - NAUSEA [None]
  - SEPSIS [None]
  - DIARRHOEA [None]
  - FATIGUE [None]
  - DIZZINESS [None]
  - WEIGHT DECREASED [None]
